FAERS Safety Report 5320965-3 (Version None)
Quarter: 2007Q2

REPORT INFORMATION
  Report Type: 
  Country: None (occurrence: None)
  Receive Date: 20070510
  Receipt Date: 20070430
  Transmission Date: 20071010
  Serious: Yes (Other)
  Sender: FDA-Public Use
  Company Number: PHEH2007US04402

PATIENT
  Age: 28 Year
  Sex: Female

DRUGS (1)
  1. ZELMAC HTF+TAB [Suspect]
     Indication: IRRITABLE BOWEL SYNDROME
     Dosage: 6 MG, BID
     Route: 048
     Dates: start: 20020101, end: 20070401

REACTIONS (6)
  - CARDIAC VALVE DISEASE [None]
  - CARDIOMEGALY [None]
  - CARDIOVASCULAR DISORDER [None]
  - CHEST PAIN [None]
  - HEART RATE INCREASED [None]
  - TACHYCARDIA [None]
